FAERS Safety Report 6969062-1 (Version None)
Quarter: 2010Q3

REPORT INFORMATION
  Report Type: 
  Country: None (occurrence: None)
  Receive Date: 20100907
  Receipt Date: 20100826
  Transmission Date: 20110219
  Serious: Yes (Other)
  Sender: FDA-Public Use
  Company Number: CO-AMGEN-QUU435953

PATIENT
  Sex: Female

DRUGS (6)
  1. ENBREL [Suspect]
     Indication: RHEUMATOID ARTHRITIS
     Dosage: 50 MG, FREQUENCY UNSPECIFIED
     Route: 058
     Dates: start: 20090101, end: 20100201
  2. ACETAMINOPHEN [Concomitant]
     Indication: RHEUMATOID ARTHRITIS
     Dosage: 500 MG EVERY 1 PRN
  3. PREDNISOLONE [Concomitant]
     Indication: RHEUMATOID ARTHRITIS
     Dosage: 5 OR 10 MG DAILY AS NEEDED
  4. OMEPRAZOLE [Concomitant]
     Indication: GASTRITIS
  5. EUTIROX [Concomitant]
     Indication: THYROID DISORDER
  6. NAPROXEN [Concomitant]
     Indication: RHEUMATOID ARTHRITIS

REACTIONS (2)
  - DRUG INEFFECTIVE [None]
  - HEPATITIS [None]
